FAERS Safety Report 5410598-2 (Version None)
Quarter: 2007Q3

REPORT INFORMATION
  Report Type: 
  Country: None (occurrence: None)
  Receive Date: 20070810
  Receipt Date: 20070403
  Transmission Date: 20080115
  Serious: No
  Sender: FDA-Public Use
  Company Number: A0645792A

PATIENT
  Age: 32 Year
  Sex: Male

DRUGS (1)
  1. PAXIL [Suspect]
     Indication: DEPRESSION
     Dosage: 60MG PER DAY
     Route: 048
     Dates: start: 19960101, end: 20070209

REACTIONS (5)
  - CONFUSIONAL STATE [None]
  - DRUG INEFFECTIVE [None]
  - DRUG WITHDRAWAL SYNDROME [None]
  - NASOPHARYNGITIS [None]
  - TENSION [None]
